FAERS Safety Report 5729466-1 (Version None)
Quarter: 2008Q2

REPORT INFORMATION
  Report Type: 
  Country: None (occurrence: None)
  Receive Date: 20080506
  Receipt Date: 20080428
  Transmission Date: 20081010
  Serious: Yes (Other)
  Sender: FDA-Public Use
  Company Number: US-AMGEN-QUU274315

PATIENT
  Sex: Male
  Weight: 59.9 kg

DRUGS (8)
  1. ENBREL [Suspect]
     Indication: RHEUMATOID ARTHRITIS
     Route: 058
     Dates: start: 20071101
  2. PRILOSEC [Concomitant]
  3. TRAMADOL HCL [Concomitant]
  4. COSOPT [Concomitant]
     Route: 047
  5. ALPHAGAN [Concomitant]
     Route: 047
  6. LOTEPREDNOL ETABONATE [Concomitant]
  7. TRAZODONE HCL [Concomitant]
     Dates: start: 20080301
  8. QUININE [Concomitant]
     Dates: start: 20080301

REACTIONS (16)
  - ANTINUCLEAR ANTIBODY INCREASED [None]
  - AUTOIMMUNE DISORDER [None]
  - BLINDNESS UNILATERAL [None]
  - CATARACT [None]
  - CONDITION AGGRAVATED [None]
  - CORNEAL ABRASION [None]
  - DIARRHOEA [None]
  - FATIGUE [None]
  - GLAUCOMA [None]
  - HYPERSOMNIA [None]
  - INJECTION SITE PAIN [None]
  - JOINT EFFUSION [None]
  - MYALGIA [None]
  - RHEUMATOID ARTHRITIS [None]
  - ULCERATIVE KERATITIS [None]
  - VISUAL ACUITY REDUCED [None]
